FAERS Safety Report 10459855 (Version 2)
Quarter: 2014Q3

REPORT INFORMATION
  Report Type: Spontaneous
  Country: JP (occurrence: JP)
  Receive Date: 20140917
  Receipt Date: 20140917
  Transmission Date: 20150326
  Serious: Yes (Death, Other)
  Sender: FDA-Public Use
  Company Number: JP-BAYER-2014-033614

PATIENT
  Age: 60 Year
  Sex: Male
  Weight: 63 kg

DRUGS (9)
  1. STIVARGA [Suspect]
     Active Substance: REGORAFENIB
     Indication: RECTAL CANCER
     Dosage: 120MG, QD
     Route: 048
     Dates: start: 20140308, end: 20140314
  2. HOKUNALIN [Concomitant]
     Active Substance: TULOBUTEROL
     Dosage: DAILY DOSE 2 MG
     Route: 062
     Dates: start: 20140217, end: 20140803
  3. TAKEPRON [Concomitant]
     Active Substance: LANSOPRAZOLE
     Dosage: DAILY DOSE 15 MG
     Route: 048
     Dates: start: 20140217, end: 20140803
  4. STIVARGA [Suspect]
     Active Substance: REGORAFENIB
     Indication: COLORECTAL CANCER
     Dosage: 120 MG, QD
     Route: 048
     Dates: start: 20140414, end: 20140421
  5. LOXONIN [Concomitant]
     Active Substance: LOXOPROFEN SODIUM
     Dosage: DAILY DOSE 3 DF
     Route: 048
     Dates: start: 20140217, end: 20140803
  6. STIVARGA [Suspect]
     Active Substance: REGORAFENIB
     Indication: COLORECTAL CANCER
     Dosage: 160 MG, QD
     Route: 048
     Dates: start: 20140221, end: 20140228
  7. STIVARGA [Suspect]
     Active Substance: REGORAFENIB
     Indication: COLORECTAL CANCER
     Dosage: 80 MG, QD
     Route: 048
     Dates: start: 20140428, end: 20140509
  8. ISOBIDE [Concomitant]
     Active Substance: ISOSORBIDE
     Dosage: DAILY DOSE 60 ML
     Route: 048
     Dates: start: 20140217, end: 20140803
  9. FENTANYL CITRATE. [Concomitant]
     Active Substance: FENTANYL CITRATE
     Dosage: DAILY DOSE 32 MG
     Route: 062
     Dates: start: 20140217, end: 20140803

REACTIONS (3)
  - Rectal cancer [Fatal]
  - Platelet count decreased [Recovered/Resolved]
  - Platelet count decreased [Unknown]

NARRATIVE: CASE EVENT DATE: 20140228
